FAERS Safety Report 23916067 (Version 1)
Quarter: 2024Q2

REPORT INFORMATION
  Report Type: Spontaneous
  Country: US (occurrence: US)
  Receive Date: 20240529
  Receipt Date: 20240529
  Transmission Date: 20240716
  Serious: No
  Sender: FDA-Public Use
  Company Number: US-SA-SAC20240527000351

PATIENT
  Sex: Male

DRUGS (2)
  1. DUPIXENT [Suspect]
     Active Substance: DUPILUMAB
     Indication: Asthma
     Dosage: 400MG/2.28ML (2 PENS, EACH PEN 200MG/1.14ML) ON DAY 1
     Route: 058
     Dates: start: 20230924, end: 20230924
  2. DUPIXENT [Suspect]
     Active Substance: DUPILUMAB
     Dosage: 200MG/1.14ML ON DAY 15 AND EVERY 14 DAYS THEREAFTER
     Route: 058
     Dates: start: 2023

REACTIONS (2)
  - Bronchitis [Unknown]
  - Dyspnoea [Unknown]
